FAERS Safety Report 16979818 (Version 1)
Quarter: 2019Q4

REPORT INFORMATION
  Report Type: Spontaneous
  Country: SE (occurrence: SE)
  Receive Date: 20191031
  Receipt Date: 20191031
  Transmission Date: 20200122
  Serious: Yes (Congenital Anomaly)
  Sender: FDA-Public Use
  Company Number: SE-ASTRAZENECA-2019SF50819

PATIENT
  Sex: Female

DRUGS (2)
  1. ELVANSE [Suspect]
     Active Substance: LISDEXAMFETAMINE DIMESYLATE
     Route: 048
  2. QUETIAPINE. [Suspect]
     Active Substance: QUETIAPINE
     Dosage: 100.0MG UNKNOWN
     Route: 048

REACTIONS (3)
  - Foetal exposure during pregnancy [Recovered/Resolved]
  - Foetal malformation [Recovered/Resolved]
  - Foetal chromosome abnormality [Recovered/Resolved]
